FAERS Safety Report 9147550 (Version 1)
Quarter: 2013Q1

REPORT INFORMATION
  Report Type: Spontaneous
  Country: JP (occurrence: JP)
  Receive Date: 20130307
  Receipt Date: 20130307
  Transmission Date: 20140127
  Serious: Yes (Other)
  Sender: FDA-Public Use
  Company Number: JP-PFIZER INC-2013064554

PATIENT
  Age: 71 Year
  Sex: Female

DRUGS (1)
  1. TORISEL [Suspect]
     Indication: RENAL CANCER
     Dosage: UNK
     Route: 042
     Dates: start: 20130220

REACTIONS (1)
  - Cardiac failure [Recovered/Resolved]
